FAERS Safety Report 6847715-3 (Version None)
Quarter: 2010Q3

REPORT INFORMATION
  Report Type: 
  Country: None (occurrence: None)
  Receive Date: 20100716
  Receipt Date: 20100712
  Transmission Date: 20110219
  Serious: Yes (Death)
  Sender: FDA-Public Use
  Company Number: PHHY2010MX44957

PATIENT
  Age: 61 Year
  Sex: Female
  Weight: 68.5 kg

DRUGS (2)
  1. EXFORGE [Suspect]
     Indication: HYPERTENSION
     Dosage: 1 TABLET (160/5) MG
     Route: 048
  2. DIOVAN HCT [Suspect]
     Indication: HYPERTENSION
     Dosage: ONE TABLET (160/12.5 MG) PER DAY
     Route: 048
     Dates: start: 20100323

REACTIONS (2)
  - COMPLETED SUICIDE [None]
  - FALL [None]
